FAERS Safety Report 5532317-1 (Version None)
Quarter: 2007Q4

REPORT INFORMATION
  Report Type: 
  Country: None (occurrence: None)
  Receive Date: 20071203
  Receipt Date: 20071123
  Transmission Date: 20080405
  Serious: Yes (Other)
  Sender: FDA-Public Use
  Company Number: AU-ABBOTT-07P-008-0414974-00

PATIENT
  Sex: Male

DRUGS (17)
  1. LIPIDIL [Suspect]
     Indication: LIPIDS ABNORMAL
     Route: 048
     Dates: start: 20070308
  2. LIPIDIL [Suspect]
     Indication: NEUROPATHY PERIPHERAL
     Route: 048
     Dates: start: 20070426, end: 20070503
  3. METFORMIN HCL [Suspect]
     Indication: BLOOD GLUCOSE INCREASED
     Route: 048
     Dates: start: 20070426, end: 20070503
  4. AVAPRO HCT 300 MG/12.5 MG [Concomitant]
     Indication: DRUG USE FOR UNKNOWN INDICATION
     Route: 048
  5. CLONAZEPAM [Concomitant]
     Indication: DRUG USE FOR UNKNOWN INDICATION
     Route: 048
  6. WARFARIN SODIUM [Concomitant]
     Indication: DRUG USE FOR UNKNOWN INDICATION
     Route: 048
  7. WARFARIN SODIUM [Concomitant]
     Route: 048
  8. WARFARIN SODIUM [Concomitant]
     Route: 048
  9. LANOXIN PG 62.5 MICROGRAM [Concomitant]
     Indication: DRUG USE FOR UNKNOWN INDICATION
     Route: 048
  10. LIGNOCAINE 0.5% OINTMENT [Concomitant]
     Indication: DRUG USE FOR UNKNOWN INDICATION
     Route: 061
  11. LIQUIFIL TEARS 1.4% [Concomitant]
     Indication: DRUG USE FOR UNKNOWN INDICATION
     Route: 065
  12. NITROLINGUAL PUMPSPRAY 400 MICROGRAM/DOSE [Concomitant]
     Indication: ANGINA PECTORIS
     Route: 060
  13. MAXOLON 10 MG TABLET [Concomitant]
     Indication: NAUSEA
     Route: 065
  14. SENOKOT 7.5 MG TABLET [Concomitant]
     Indication: DRUG USE FOR UNKNOWN INDICATION
     Route: 065
  15. SERETIDE MDI 250/25 250MCG-25MCG/DOSE INHALER [Concomitant]
     Indication: DRUG USE FOR UNKNOWN INDICATION
     Route: 065
  16. TEMAZE 10 MG TABLET [Concomitant]
     Indication: DRUG USE FOR UNKNOWN INDICATION
     Route: 065
  17. PANADEINE FORTE 500 MG/30 MG [Concomitant]
     Indication: DRUG USE FOR UNKNOWN INDICATION

REACTIONS (7)
  - ABDOMINAL PAIN [None]
  - BLOOD POTASSIUM INCREASED [None]
  - BLOOD UREA INCREASED [None]
  - BODY TEMPERATURE [None]
  - HAEMATURIA [None]
  - HEPATITIS [None]
  - LIVER FUNCTION TEST ABNORMAL [None]
